FAERS Safety Report 13861619 (Version 1)
Quarter: 2017Q3

REPORT INFORMATION
  Report Type: Report from Study
  Country: AU (occurrence: AU)
  Receive Date: 20170811
  Receipt Date: 20170811
  Transmission Date: 20171127
  Serious: Yes (Other)
  Sender: FDA-Public Use
  Company Number: AU-REGENERON PHARMACEUTICALS, INC.-2017-20201

PATIENT

DRUGS (2)
  1. EYLEA [Suspect]
     Active Substance: AFLIBERCEPT
     Indication: NEOVASCULAR AGE-RELATED MACULAR DEGENERATION
     Dosage: UNK, Q4WK
     Route: 031
     Dates: start: 20160301
  2. MACU-VISION [Concomitant]
     Active Substance: ASCORBIC ACID\CUPRIC OXIDE\TOCOPHERSOLAN\ZINC OXIDE
     Indication: PRODUCT USED FOR UNKNOWN INDICATION

REACTIONS (6)
  - Eye haemorrhage [Unknown]
  - Photophobia [Not Recovered/Not Resolved]
  - Cataract [Not Recovered/Not Resolved]
  - Photopsia [Unknown]
  - Balance disorder [Unknown]
  - Musculoskeletal stiffness [Not Recovered/Not Resolved]

NARRATIVE: CASE EVENT DATE: 201607
